FAERS Safety Report 5709098-1 (Version None)
Quarter: 2008Q2

REPORT INFORMATION
  Report Type: 
  Country: None (occurrence: None)
  Receive Date: 20080416
  Receipt Date: 20080416
  Transmission Date: 20081010
  Serious: Yes (Life-Threatening)
  Sender: FDA-Public Use
  Company Number: None

PATIENT
  Sex: Female
  Weight: 83.0083 kg

DRUGS (1)
  1. KARIVA [Suspect]
     Indication: CONTRACEPTION
     Dosage: ONE TABLET DAILY PO
     Route: 048
     Dates: start: 20071104, end: 20080201

REACTIONS (1)
  - PULMONARY EMBOLISM [None]
